FAERS Safety Report 23341190 (Version 1)
Quarter: 2023Q4

REPORT INFORMATION
  Report Type: Other
  Country: GB (occurrence: GB)
  Receive Date: 20231227
  Receipt Date: 20231227
  Transmission Date: 20240110
  Serious: Yes (Other)
  Sender: FDA-Public Use
  Company Number: GB-AUROBINDO-AUR-APL-2011-02150

PATIENT
  Age: 40 Year
  Sex: Male

DRUGS (4)
  1. FINASTERIDE [Suspect]
     Active Substance: FINASTERIDE
     Indication: Alopecia
     Dosage: UNK UNK,ONCE A DAY,,5 MG(HALF TABLET)
     Route: 048
     Dates: start: 1998, end: 2004
  2. FINASTERIDE [Suspect]
     Active Substance: FINASTERIDE
     Dosage: 1 MG,ONCE A DAY,
     Route: 048
     Dates: start: 2004
  3. FINASTERIDE [Suspect]
     Active Substance: FINASTERIDE
     Dosage: 1 MG,TWO TIMES A DAY,
     Route: 048
     Dates: start: 2006, end: 2008
  4. AVODART [Suspect]
     Active Substance: DUTASTERIDE
     Indication: Alopecia
     Dosage: 500 ?G,ONCE A DAY,
     Route: 048
     Dates: start: 2008, end: 2009

REACTIONS (6)
  - Dark circles under eyes [Unknown]
  - Intentional product misuse [Unknown]
  - Skin atrophy [Unknown]
  - Wrong technique in product usage process [Unknown]
  - Dysgeusia [Unknown]
  - Overdose [Unknown]

NARRATIVE: CASE EVENT DATE: 19980101
